FAERS Safety Report 14974742 (Version 1)
Quarter: 2018Q2

REPORT INFORMATION
  Report Type: Spontaneous
  Country: GH (occurrence: GH)
  Receive Date: 20180605
  Receipt Date: 20180605
  Transmission Date: 20180711
  Serious: Yes (Other)
  Sender: FDA-Public Use
  Company Number: GH-PFIZER INC-2018228419

PATIENT

DRUGS (1)
  1. ZITHROMAX [Suspect]
     Active Substance: AZITHROMYCIN DIHYDRATE
     Indication: PNEUMONIA
     Dosage: UNK
     Route: 042

REACTIONS (4)
  - Gangrene [Unknown]
  - Tenderness [Unknown]
  - Peripheral swelling [Unknown]
  - Pain in extremity [Unknown]
